FAERS Safety Report 7345521-7 (Version None)
Quarter: 2011Q1

REPORT INFORMATION
  Report Type: 
  Country: None (occurrence: None)
  Receive Date: 20110310
  Receipt Date: 20110301
  Transmission Date: 20110831
  Serious: Yes (Disabling)
  Sender: FDA-Public Use
  Company Number: GB-ASTRAZENECA-2011SE07455

PATIENT
  Age: 77 Year
  Sex: Male

DRUGS (5)
  1. ASPIRIN [Concomitant]
     Indication: MYOCARDIAL ISCHAEMIA
     Route: 048
  2. ZOLADEX [Suspect]
     Indication: PROSTATE CANCER
     Route: 058
     Dates: start: 20100101, end: 20101001
  3. CALCIUM CARBONATE [Concomitant]
     Route: 048
  4. SIMVASTATIN [Concomitant]
     Indication: HYPERCHOLESTEROLAEMIA
     Route: 048
     Dates: start: 20060101
  5. ESOMEPRAZOLE [Concomitant]
     Indication: DYSPEPSIA
     Route: 048

REACTIONS (6)
  - DEMENTIA ALZHEIMER'S TYPE [None]
  - COMMUNICATION DISORDER [None]
  - DEMYELINATION [None]
  - COGNITIVE DISORDER [None]
  - VASCULAR DEMENTIA [None]
  - CEREBRAL ATROPHY [None]
